FAERS Safety Report 8619214-X (Version None)
Quarter: 2012Q3

REPORT INFORMATION
  Report Type: 
  Country: None (occurrence: None)
  Receive Date: 20120824
  Receipt Date: 20120821
  Transmission Date: 20120928
  Serious: Yes (Death)
  Sender: FDA-Public Use
  Company Number: US-CELGENEUS-163-21880-11093041

PATIENT
  Sex: Female

DRUGS (13)
  1. REVLIMID [Suspect]
     Dosage: 15 MILLIGRAM
     Route: 048
     Dates: start: 20100426, end: 20110602
  2. REVLIMID [Suspect]
     Dosage: 15 MILLIGRAM
     Route: 048
     Dates: start: 20090401
  3. ZOFRAN [Concomitant]
     Route: 065
  4. LOPERAMIDE [Concomitant]
     Route: 065
  5. IRON SUPPLEMENT [Concomitant]
     Dosage: 325 MILLIGRAM
     Route: 065
  6. REVLIMID [Suspect]
     Dosage: 15 MILLIGRAM
     Route: 048
     Dates: start: 20091101
  7. BYSTOLIC [Concomitant]
     Indication: BLOOD PRESSURE
     Dosage: 10 MILLIGRAM
     Route: 065
  8. REMERON [Concomitant]
     Route: 065
  9. K SUPPLEMENT [Concomitant]
     Route: 065
  10. POTASSIUM CHLORIDE [Concomitant]
     Dosage: 20 MILLIGRAM
     Route: 048
  11. DIAZIDE [Concomitant]
     Indication: BLOOD PRESSURE
     Route: 065
  12. DECADRON PHOSPHATE [Concomitant]
     Route: 065
  13. VITAMIN B COMPLEX CAP [Concomitant]
     Route: 048

REACTIONS (2)
  - DEATH [None]
  - DIARRHOEA [None]
